FAERS Safety Report 6678674-4 (Version None)
Quarter: 2010Q2

REPORT INFORMATION
  Report Type: 
  Country: None (occurrence: None)
  Receive Date: 20100413
  Receipt Date: 20100331
  Transmission Date: 20101027
  Serious: Yes (Other)
  Sender: FDA-Public Use
  Company Number: CA-PFIZER INC-2010043444

PATIENT
  Sex: Male

DRUGS (1)
  1. CHAMPIX [Suspect]
     Indication: SMOKING CESSATION THERAPY
     Dosage: UNK
     Dates: start: 20070601, end: 20070701

REACTIONS (5)
  - ABDOMINAL DISCOMFORT [None]
  - BIPOLAR I DISORDER [None]
  - MOOD ALTERED [None]
  - SEASONAL AFFECTIVE DISORDER [None]
  - SLEEP TERROR [None]
